FAERS Safety Report 7810489-3 (Version None)
Quarter: 2011Q4

REPORT INFORMATION
  Report Type: 
  Country: None (occurrence: None)
  Receive Date: 20111012
  Receipt Date: 20111003
  Transmission Date: 20120403
  Serious: Yes (Hospitalization, Other)
  Sender: FDA-Public Use
  Company Number: US-ASTRAZENECA-2011SE58981

PATIENT
  Age: 42 Year
  Sex: Female
  Weight: 112.1 kg

DRUGS (4)
  1. SUNITINIB MALATE,SORAFENIB,PLACEBO (CODE NOT BROKEN) [Suspect]
     Indication: RENAL CANCER
     Route: 048
     Dates: start: 20081113
  2. SUNITINIB MALATE,SORAFENIB,PLACEBO (CODE NOT BROKEN) [Suspect]
     Indication: RENAL CELL CARCINOMA
     Route: 048
     Dates: start: 20081113
  3. PRILOSEC [Suspect]
     Route: 048
  4. ACIPHEX [Suspect]

REACTIONS (9)
  - MYALGIA [None]
  - NEPHROLITHIASIS [None]
  - HYPERTENSION [None]
  - PERIPHERAL SENSORY NEUROPATHY [None]
  - DIVERTICULUM [None]
  - HEPATIC STEATOSIS [None]
  - UTERINE LEIOMYOMA [None]
  - PANCREATITIS ACUTE [None]
  - OVARIAN CYST [None]
